FAERS Safety Report 8578806-7 (Version None)
Quarter: 2012Q3

REPORT INFORMATION
  Report Type: 
  Country: None (occurrence: None)
  Receive Date: 20120808
  Receipt Date: 20120803
  Transmission Date: 20120928
  Serious: Yes (Hospitalization)
  Sender: FDA-Public Use
  Company Number: US-TEVA-352076USA

PATIENT
  Sex: Female

DRUGS (1)
  1. JUNEL FE 1.5/30 [Suspect]
     Indication: CONTRACEPTION
     Dosage: 5/30 (28-DAY PACK)
     Route: 048
     Dates: start: 20120601, end: 20120101

REACTIONS (6)
  - KIDNEY INFECTION [None]
  - PAIN [None]
  - ABDOMINAL PAIN UPPER [None]
  - NAUSEA [None]
  - MALAISE [None]
  - BODY TEMPERATURE INCREASED [None]
